FAERS Safety Report 5944686-9 (Version None)
Quarter: 2008Q4

REPORT INFORMATION
  Report Type: 
  Country: None (occurrence: None)
  Receive Date: 20081107
  Receipt Date: 20081028
  Transmission Date: 20090506
  Serious: Yes (Other)
  Sender: FDA-Public Use
  Company Number: US-JNJFOC-20081007408

PATIENT
  Sex: Female
  Weight: 81.65 kg

DRUGS (3)
  1. REMICADE [Suspect]
     Indication: RHEUMATOID ARTHRITIS
     Route: 042
  2. VERAPIMIL [Concomitant]
     Indication: BLOOD PRESSURE
  3. ESTROGENIC SUBSTANCE [Concomitant]
     Indication: BLOOD OESTROGEN ABNORMAL

REACTIONS (2)
  - BREAST CANCER [None]
  - INFECTION [None]
